FAERS Safety Report 11026218 (Version 1)
Quarter: 2015Q2

REPORT INFORMATION
  Report Type: Spontaneous
  Country: None (occurrence: None)
  Receive Date: 20150413
  Receipt Date: 20150413
  Transmission Date: 20150821
  Serious: Yes (Other)
  Sender: FDA-Public Use
  Company Number: None

PATIENT
  Age: 47 Year
  Sex: Female
  Weight: 115.67 kg

DRUGS (11)
  1. PROTONIX [Concomitant]
     Active Substance: PANTOPRAZOLE SODIUM
  2. FLUTICASONE [Concomitant]
     Active Substance: FLUTICASONE\FLUTICASONE PROPIONATE
  3. WELCHOL [Suspect]
     Active Substance: COLESEVELAM HYDROCHLORIDE
     Indication: DIARRHOEA
     Dosage: 3 YEARS?625MG UP TO 3X PER DAY, ONCE DAILY, TAKEN BY MOUTH
     Route: 048
  4. SINGULAIR [Concomitant]
     Active Substance: MONTELUKAST SODIUM
  5. ZYRTEC [Concomitant]
     Active Substance: CETIRIZINE HYDROCHLORIDE
  6. D3 50,000 UNITS [Concomitant]
  7. VITAMIN B12 COMPLEX [Concomitant]
  8. BIOTIN 5000MG [Concomitant]
  9. WELCHOL [Suspect]
     Active Substance: COLESEVELAM HYDROCHLORIDE
     Indication: TOTAL BILE ACIDS
     Dosage: 3 YEARS?625MG UP TO 3X PER DAY, ONCE DAILY, TAKEN BY MOUTH
     Route: 048
  10. ULTIMATE FLORA [Concomitant]
  11. METAMUCIL [Concomitant]
     Active Substance: PLANTAGO SEED

REACTIONS (11)
  - Vitamin D deficiency [None]
  - Pruritus [None]
  - Myalgia [None]
  - Dysphagia [None]
  - Depressed level of consciousness [None]
  - Fatigue [None]
  - Asthenia [None]
  - Pain [None]
  - Dry skin [None]
  - Alopecia [None]
  - Fall [None]
